FAERS Safety Report 9832231 (Version 1)
Quarter: 2014Q1

REPORT INFORMATION
  Report Type: Spontaneous
  Country: TH (occurrence: TH)
  Receive Date: 20140121
  Receipt Date: 20140121
  Transmission Date: 20141002
  Serious: Yes (Other)
  Sender: FDA-Public Use
  Company Number: PHHY2014TH006515

PATIENT
  Sex: 0

DRUGS (1)
  1. DICLOFENAC [Suspect]
     Dosage: 2 TO 3 TIMES
     Route: 030

REACTIONS (2)
  - General physical health deterioration [Unknown]
  - Hypoaesthesia [Unknown]
